FAERS Safety Report 9258130 (Version 3)
Quarter: 2013Q2

REPORT INFORMATION
  Report Type: Report from Study
  Country: US (occurrence: US)
  Receive Date: 20130426
  Receipt Date: 20130523
  Transmission Date: 20140414
  Serious: Yes (Death, Hospitalization)
  Sender: FDA-Public Use
  Company Number: US-ACTELION-A-NJ2012-59699

PATIENT
  Age: 57 Year
  Sex: Male

DRUGS (2)
  1. TRACLEER [Suspect]
     Indication: PULMONARY ARTERIAL HYPERTENSION
     Dosage: UNK
     Route: 048
     Dates: end: 20130420
  2. DIGOXIN [Concomitant]

REACTIONS (5)
  - Medical device complication [Fatal]
  - Dialysis device insertion [Unknown]
  - Renal failure acute [Unknown]
  - Fluid retention [Unknown]
  - Hypokalaemia [Unknown]
